FAERS Safety Report 4788899-0 (Version None)
Quarter: 2005Q4

REPORT INFORMATION
  Report Type: 
  Country: None (occurrence: None)
  Receive Date: 20051004
  Receipt Date: 20050916
  Transmission Date: 20060501
  Serious: Yes (Hospitalization)
  Sender: FDA-Public Use
  Company Number: CA_050808568

PATIENT
  Age: 81 Year
  Sex: Female

DRUGS (4)
  1. FORTEO [Suspect]
     Indication: OSTEOPOROSIS
     Dosage: 20 UG DAY
     Dates: start: 20050706
  2. LACTULOSE [Concomitant]
  3. CALCIUM GLUCONATE [Concomitant]
  4. COD-LIVER OIL [Concomitant]

REACTIONS (2)
  - CONSTIPATION [None]
  - VOMITING [None]
